FAERS Safety Report 15528619 (Version 2)
Quarter: 2020Q2

REPORT INFORMATION
  Report Type: Spontaneous
  Country: US (occurrence: US)
  Receive Date: 20181018
  Receipt Date: 20200528
  Transmission Date: 20200713
  Serious: Yes (Life-Threatening, Hospitalization, Other)
  Sender: FDA-Public Use
  Company Number: US-JNJFOC-20181018748

PATIENT
  Age: 66 Year
  Sex: Male
  Weight: 175 kg

DRUGS (3)
  1. CANAGLIFLOZIN [Suspect]
     Active Substance: CANAGLIFLOZIN
     Indication: TYPE 2 DIABETES MELLITUS
     Route: 048
     Dates: start: 2018
  2. FUROSEMIDE. [Suspect]
     Active Substance: FUROSEMIDE
     Indication: PRODUCT USED FOR UNKNOWN INDICATION
     Route: 048
  3. ENALAPRIL [Suspect]
     Active Substance: ENALAPRIL
     Indication: PRODUCT USED FOR UNKNOWN INDICATION
     Route: 048

REACTIONS (3)
  - Acute kidney injury [Recovered/Resolved]
  - Nephrotic syndrome [Recovered/Resolved]
  - Renal impairment [Recovered/Resolved]

NARRATIVE: CASE EVENT DATE: 2018
